FAERS Safety Report 4620954-8 (Version None)
Quarter: 2005Q2

REPORT INFORMATION
  Report Type: 
  Country: None (occurrence: None)
  Receive Date: 20050315
  Receipt Date: 20050203
  Transmission Date: 20051028
  Serious: No
  Sender: FDA-Public Use
  Company Number: US-YAMANOUCHI-YPA20050058

PATIENT
  Age: 81 Year
  Sex: Female
  Weight: 49.8957 kg

DRUGS (7)
  1. VESICARE [Suspect]
     Indication: HYPERTONIC BLADDER
     Dosage: 5 MG QD PO
     Route: 048
     Dates: start: 20050202
  2. VESICARE [Suspect]
     Indication: URGE INCONTINENCE
     Dosage: 5 MG QD PO
     Route: 048
     Dates: start: 20050202
  3. INDERAL [Concomitant]
  4. ST. JOHN'S WORT [Concomitant]
  5. MULTI-VITAMINS [Concomitant]
  6. ACTONEL [Concomitant]
  7. TIMOLOL MALEATE [Concomitant]

REACTIONS (2)
  - CHEST PAIN [None]
  - NAUSEA [None]
